FAERS Safety Report 7551297-0 (Version None)
Quarter: 2011Q2

REPORT INFORMATION
  Report Type: 
  Country: None (occurrence: None)
  Receive Date: 20110616
  Receipt Date: 20110613
  Transmission Date: 20111010
  Serious: Yes (Death, Other)
  Sender: FDA-Public Use
  Company Number: PHHY2011AR52230

PATIENT
  Sex: Male

DRUGS (1)
  1. DIOVAN [Suspect]
     Indication: INFARCTION
     Dosage: 80 MG, DAILY
     Dates: end: 20100501

REACTIONS (3)
  - RENAL CANCER [None]
  - ARTERIAL OCCLUSIVE DISEASE [None]
  - METASTASIS [None]
